FAERS Safety Report 7553716-2 (Version None)
Quarter: 2011Q2

REPORT INFORMATION
  Report Type: 
  Country: None (occurrence: None)
  Receive Date: 20110617
  Receipt Date: 20110602
  Transmission Date: 20111010
  Serious: Yes (Other)
  Sender: FDA-Public Use
  Company Number: CA-JNJFOC-20110601999

PATIENT
  Sex: Female
  Weight: 91 kg

DRUGS (9)
  1. LITHIUM CARBONATE [Concomitant]
     Route: 065
  2. CYMBALTA [Concomitant]
     Route: 065
  3. ABILIFY [Concomitant]
     Route: 065
  4. IMURAN [Concomitant]
     Route: 065
  5. SEROQUEL [Concomitant]
     Route: 065
  6. GRAVOL TAB [Concomitant]
     Route: 048
  7. FLOVENT [Concomitant]
     Route: 065
  8. REMICADE [Suspect]
     Indication: CROHN'S DISEASE
     Route: 042
     Dates: start: 20100829
  9. REMICADE [Suspect]
     Route: 042
     Dates: start: 20101101, end: 20110604

REACTIONS (1)
  - ARTHRITIS [None]
